FAERS Safety Report 8143906-2 (Version None)
Quarter: 2012Q1

REPORT INFORMATION
  Report Type: 
  Country: None (occurrence: None)
  Receive Date: 20120217
  Receipt Date: 20120210
  Transmission Date: 20120608
  Serious: Yes (Other)
  Sender: FDA-Public Use
  Company Number: IT-ABBOTT-12P-083-0903680-00

PATIENT

DRUGS (1)
  1. HUMIRA [Suspect]
     Indication: RHEUMATOID ARTHRITIS

REACTIONS (7)
  - SOMNOLENCE [None]
  - SOPOR [None]
  - MEMORY IMPAIRMENT [None]
  - VASCULITIS [None]
  - ENCEPHALITIS VIRAL [None]
  - DELIRIUM [None]
  - HALLUCINATION [None]
